FAERS Safety Report 14437032 (Version 1)
Quarter: 2018Q1

REPORT INFORMATION
  Report Type: Spontaneous
  Country: US (occurrence: US)
  Receive Date: 20180125
  Receipt Date: 20180125
  Transmission Date: 20180509
  Serious: No
  Sender: FDA-Public Use
  Company Number: None

PATIENT
  Sex: Female

DRUGS (1)
  1. RASUVO [Suspect]
     Active Substance: METHOTREXATE SODIUM
     Indication: RHEUMATOID ARTHRITIS
     Dosage: DOSE - 15 MG (0.3ML)
     Route: 058
     Dates: start: 201706

REACTIONS (3)
  - Feeling abnormal [None]
  - Nasopharyngitis [None]
  - Infection [None]
